FAERS Safety Report 12312350 (Version 1)
Quarter: 2016Q2

REPORT INFORMATION
  Report Type: Report from Study
  Country: US (occurrence: US)
  Receive Date: 20160428
  Receipt Date: 20160428
  Transmission Date: 20160815
  Serious: Yes (Hospitalization, Other)
  Sender: FDA-Public Use
  Company Number: US-AMGEN-USASL2016051543

PATIENT
  Age: 73 Year
  Sex: Male

DRUGS (2)
  1. REPATHA [Suspect]
     Active Substance: EVOLOCUMAB
     Indication: HYPERCHOLESTEROLAEMIA
     Dosage: 140 MG, Q2WK
     Route: 065
     Dates: start: 201602
  2. REPATHA [Suspect]
     Active Substance: EVOLOCUMAB
     Indication: HYPERTRIGLYCERIDAEMIA

REACTIONS (8)
  - Blood disorder [Unknown]
  - Hypoacusis [Unknown]
  - Gastric polyps [Unknown]
  - Asthenia [Unknown]
  - Feeling abnormal [Unknown]
  - Gastric haemorrhage [Unknown]
  - Stent placement [Unknown]
  - Dyspnoea [Unknown]

NARRATIVE: CASE EVENT DATE: 201603
